FAERS Safety Report 4976407-0 (Version None)
Quarter: 2006Q2

REPORT INFORMATION
  Report Type: 
  Country: None (occurrence: None)
  Receive Date: 20060419
  Receipt Date: 20060413
  Transmission Date: 20061013
  Serious: Yes (Other)
  Sender: FDA-Public Use
  Company Number: 2006AP01731

PATIENT
  Age: 3 Year
  Weight: 16.5 kg

DRUGS (1)
  1. MEROPENEM [Suspect]

REACTIONS (2)
  - EOSINOPHILIA [None]
  - URTICARIA [None]
